FAERS Safety Report 20363270 (Version 1)
Quarter: 2022Q1

REPORT INFORMATION
  Report Type: Spontaneous
  Country: US (occurrence: None)
  Receive Date: 20220121
  Receipt Date: 20220121
  Transmission Date: 20220423
  Serious: Yes (Other)
  Sender: FDA-Public Use
  Company Number: None

PATIENT
  Age: 84 Year
  Sex: Female
  Weight: 57.15 kg

DRUGS (14)
  1. REGEN-COV [Suspect]
     Active Substance: CASIRIVIMAB\IMDEVIMAB
     Indication: COVID-19
  2. JAKAFI [Concomitant]
  3. FOSAMAX [Concomitant]
     Active Substance: ALENDRONATE SODIUM
  4. LEVOTHYROXINE [Concomitant]
     Active Substance: LEVOTHYROXINE
  5. AMLODIPINE [Concomitant]
     Active Substance: AMLODIPINE BESYLATE
  6. CARVEDILOL [Concomitant]
     Active Substance: CARVEDILOL
  7. SIMVASTATIN [Concomitant]
     Active Substance: SIMVASTATIN
  8. REMERON [Concomitant]
     Active Substance: MIRTAZAPINE
  9. VITAMIN B12 [Concomitant]
     Active Substance: CYANOCOBALAMIN
  10. D [Concomitant]
  11. ASPIRIN [Concomitant]
     Active Substance: ASPIRIN
  12. SENNA S [Concomitant]
     Active Substance: DOCUSATE SODIUM\SENNA LEAF
  13. OMEPRAZOLE [Concomitant]
     Active Substance: OMEPRAZOLE
  14. PEPCID [Concomitant]
     Active Substance: FAMOTIDINE

REACTIONS (1)
  - Swelling face [None]

NARRATIVE: CASE EVENT DATE: 20220121
